FAERS Safety Report 4456251-3 (Version None)
Quarter: 2004Q3

REPORT INFORMATION
  Report Type: 
  Country: None (occurrence: None)
  Receive Date: 20040920
  Receipt Date: 20040825
  Transmission Date: 20050211
  Serious: Yes (Death)
  Sender: FDA-Public Use
  Company Number: 04H-163-0273236-00

PATIENT
  Sex: 0

DRUGS (1)
  1. MORPHINE SULFATE INJ [Suspect]
     Indication: DRUG USE FOR UNKNOWN INDICATION
     Dosage: 1 MILLIGRAM/MILLITERS, PCA DOSE OF 4 MG, INTRAVENOUS BY PCA
     Route: 042

REACTIONS (2)
  - DEVICE FAILURE [None]
  - MEDICATION ERROR [None]
